FAERS Safety Report 21126560 (Version 1)
Quarter: 2022Q3

REPORT INFORMATION
  Report Type: Spontaneous
  Country: NL (occurrence: NL)
  Receive Date: 20220725
  Receipt Date: 20220725
  Transmission Date: 20221026
  Serious: Yes (Other)
  Sender: FDA-Public Use
  Company Number: NL-BIOVITRUM-2022NL08503

PATIENT
  Age: 55 Year
  Sex: Female

DRUGS (10)
  1. AVATROMBOPAG [Suspect]
     Active Substance: AVATROMBOPAG
     Indication: Liver disorder
     Dates: start: 20210917, end: 20210922
  2. FERROSULFATE [Concomitant]
  3. INSULIN NOS [Concomitant]
     Active Substance: INSULIN NOS
  4. VITAMIN D [Concomitant]
     Active Substance: VITAMIN D NOS
  5. METFORMIN [Concomitant]
     Active Substance: METFORMIN HYDROCHLORIDE
  6. SOTALOL [Concomitant]
     Active Substance: SOTALOL
  7. SPIRONOLACTONE [Concomitant]
     Active Substance: SPIRONOLACTONE
  8. LACTULOSE [Concomitant]
     Active Substance: LACTULOSE
  9. FUROSEMIDE [Concomitant]
     Active Substance: FUROSEMIDE
  10. ESOMEPRAZOLE [Concomitant]
     Active Substance: ESOMEPRAZOLE

REACTIONS (2)
  - Post procedural haemorrhage [Unknown]
  - Drug ineffective [Unknown]
